FAERS Safety Report 18757390 (Version 2)
Quarter: 2021Q1

REPORT INFORMATION
  Report Type: Report from Study
  Country: US (occurrence: US)
  Receive Date: 20210119
  Receipt Date: 20210122
  Transmission Date: 20210419
  Serious: No
  Sender: FDA-Public Use
  Company Number: US-ASTRAZENECA-2021A008267

PATIENT
  Age: 24045 Day
  Sex: Female

DRUGS (8)
  1. MONTELUKAST [Concomitant]
     Active Substance: MONTELUKAST SODIUM
  2. ALLOPURINOL. [Concomitant]
     Active Substance: ALLOPURINOL
  3. SINGULAIR [Concomitant]
     Active Substance: MONTELUKAST SODIUM
  4. CALQUENCE [Suspect]
     Active Substance: ACALABRUTINIB
     Indication: CHRONIC LYMPHOCYTIC LEUKAEMIA
     Route: 048
  5. ASPIRIN. [Concomitant]
     Active Substance: ASPIRIN
  6. ESTRADIOL. [Concomitant]
     Active Substance: ESTRADIOL
  7. VITAMIN C [Concomitant]
     Active Substance: ASCORBIC ACID
  8. ZINC. [Concomitant]
     Active Substance: ZINC

REACTIONS (5)
  - Headache [Recovered/Resolved]
  - Contusion [Recovered/Resolved]
  - COVID-19 [Recovered/Resolved]
  - Fatigue [Recovered/Resolved]
  - Atrial flutter [Recovered/Resolved]

NARRATIVE: CASE EVENT DATE: 20210108
